FAERS Safety Report 6509825-X (Version None)
Quarter: 2009Q4

REPORT INFORMATION
  Report Type: 
  Country: None (occurrence: None)
  Receive Date: 20091222
  Receipt Date: 20091113
  Transmission Date: 20100525
  Serious: No
  Sender: FDA-Public Use
  Company Number: US-ABBOTT-09P-163-0609259-00

PATIENT
  Sex: Male

DRUGS (4)
  1. OMNICEF [Suspect]
     Indication: EAR INFECTION
     Dates: start: 20091020, end: 20091103
  2. SYNTHROID [Concomitant]
     Indication: HYPOTHYROIDISM
     Dates: start: 20020101
  3. ZERTEC [Concomitant]
     Indication: SEASONAL ALLERGY
     Dosage: UNKNOWN
  4. NASONEX [Concomitant]
     Indication: SEASONAL ALLERGY
     Dosage: UNKNOWN
     Route: 045

REACTIONS (5)
  - ILL-DEFINED DISORDER [None]
  - PERSONALITY DISORDER [None]
  - PRURITUS [None]
  - RASH [None]
  - RESTLESSNESS [None]
